FAERS Safety Report 9803534 (Version 1)
Quarter: 2014Q1

REPORT INFORMATION
  Report Type: Report from Study
  Country: EG (occurrence: EG)
  Receive Date: 20140108
  Receipt Date: 20140108
  Transmission Date: 20141002
  Serious: Yes (Death)
  Sender: FDA-Public Use
  Company Number: EG-SA-2014SA000522

PATIENT
  Age: 72 Year
  Sex: Male

DRUGS (1)
  1. LANTUS [Suspect]
     Indication: TYPE 2 DIABETES MELLITUS
     Route: 058
     Dates: start: 20130605, end: 20130701

REACTIONS (2)
  - Gastric cancer [Fatal]
  - Condition aggravated [Fatal]
